FAERS Safety Report 25057788 (Version 1)
Quarter: 2025Q1

REPORT INFORMATION
  Report Type: Spontaneous
  Country: US (occurrence: None)
  Receive Date: 20250307
  Receipt Date: 20250307
  Transmission Date: 20250408
  Serious: Yes (Death)
  Sender: FDA-CTU
  Company Number: None

PATIENT
  Age: 80 Year
  Sex: Female

DRUGS (2)
  1. CINACALCET [Suspect]
     Active Substance: CINACALCET
     Indication: Hypercalcaemia
     Dates: start: 20211210
  2. ENVARSUS XR [Suspect]
     Active Substance: TACROLIMUS
     Indication: Renal transplant
     Dosage: 1 MG DAILY ORAL?
     Route: 048
     Dates: start: 20220811

REACTIONS (1)
  - Hip fracture [None]

NARRATIVE: CASE EVENT DATE: 20250304
